FAERS Safety Report 7463470-0 (Version None)
Quarter: 2011Q2

REPORT INFORMATION
  Report Type: 
  Country: None (occurrence: None)
  Receive Date: 20110506
  Receipt Date: 20110504
  Transmission Date: 20111010
  Serious: Yes (Other)
  Sender: FDA-Public Use
  Company Number: RU-PFIZER INC-2011073677

PATIENT
  Age: 72 Year
  Sex: Female

DRUGS (4)
  1. CADUET [Suspect]
     Indication: CARDIAC FAILURE
  2. CADUET [Suspect]
     Indication: MYOCARDIAL ISCHAEMIA
  3. CADUET [Suspect]
     Indication: ANGINA PECTORIS
     Dosage: 10 MG, 1X/DAY
     Route: 048
     Dates: start: 20110318, end: 20110321
  4. CADUET [Suspect]
     Indication: HYPERTENSION

REACTIONS (3)
  - FACE OEDEMA [None]
  - OEDEMA PERIPHERAL [None]
  - GENERALISED OEDEMA [None]
